FAERS Safety Report 23150646 (Version 1)
Quarter: 2023Q4

REPORT INFORMATION
  Report Type: Spontaneous
  Country: JP (occurrence: JP)
  Receive Date: 20231106
  Receipt Date: 20231106
  Transmission Date: 20240110
  Serious: No
  Sender: FDA-Public Use
  Company Number: JP-SCALL-2022-JP-176439

PATIENT
  Age: 75 Year
  Sex: Male

DRUGS (3)
  1. DUTASTERIDE [Suspect]
     Active Substance: DUTASTERIDE
     Indication: Benign prostatic hyperplasia
     Dosage: 0.5 MG, OD
     Route: 048
  2. GASTER [Concomitant]
     Active Substance: FAMOTIDINE
     Indication: Chronic gastritis
  3. DIAZEPAM [Concomitant]
     Active Substance: DIAZEPAM
     Indication: Anxiety

REACTIONS (2)
  - Gynaecomastia [Recovering/Resolving]
  - Chest pain [Recovered/Resolved]

NARRATIVE: CASE EVENT DATE: 20220101
